FAERS Safety Report 17458499 (Version 1)
Quarter: 2020Q1

REPORT INFORMATION
  Report Type: Spontaneous
  Country: FR (occurrence: FR)
  Receive Date: 20200225
  Receipt Date: 20200225
  Transmission Date: 20200409
  Serious: Yes (Other)
  Sender: FDA-Public Use
  Company Number: FR-MYLANLABS-2020M1020020

PATIENT
  Age: 53 Year
  Sex: Female
  Weight: 76.5 kg

DRUGS (7)
  1. NORSET [Suspect]
     Active Substance: MIRTAZAPINE
     Indication: AFFECTIVE DISORDER
     Dosage: 7.5 MILLIGRAM, QD
     Route: 048
     Dates: end: 20191123
  2. ESTIMA                             /00110701/ [Concomitant]
     Active Substance: PROGESTERONE
     Dosage: 1 DOSAGE FORM, QD
     Route: 048
  3. NOCTAMIDE [Suspect]
     Active Substance: LORMETAZEPAM
     Indication: PRODUCT USED FOR UNKNOWN INDICATION
     Dosage: 1 DOSAGE FORM, QD
     Route: 048
     Dates: end: 20191128
  4. SERESTA [Concomitant]
     Active Substance: OXAZEPAM
     Indication: DEPRESSION
     Dosage: 105 MILLIGRAM, QD
     Route: 048
     Dates: start: 20191128, end: 20191201
  5. PHENERGAN [Suspect]
     Active Substance: PROMETHAZINE HYDROCHLORIDE
     Indication: PRODUCT USED FOR UNKNOWN INDICATION
     Dosage: 50 MILLIGRAM, QD
     Route: 048
     Dates: start: 20191101, end: 20191128
  6. VENLAFAXINE [Suspect]
     Active Substance: VENLAFAXINE HYDROCHLORIDE
     Indication: AFFECTIVE DISORDER
     Dosage: 150 MILLIGRAM, QD
     Route: 048
     Dates: start: 20191029, end: 20191128
  7. BROMAZEPAM [Suspect]
     Active Substance: BROMAZEPAM
     Indication: DEPRESSION
     Dosage: 9 MILLIGRAM, QD
     Route: 048
     Dates: end: 20191128

REACTIONS (1)
  - Hepatocellular injury [Recovering/Resolving]

NARRATIVE: CASE EVENT DATE: 20191127
